FAERS Safety Report 10526971 (Version 2)
Quarter: 2014Q4

REPORT INFORMATION
  Report Type: Report from Study
  Country: ES (occurrence: ES)
  Receive Date: 20141020
  Receipt Date: 20141020
  Transmission Date: 20150528
  Serious: Yes (Death, Hospitalization)
  Sender: FDA-Public Use
  Company Number: ES-ROCHE-GNE311492

PATIENT
  Age: 71 Year
  Sex: Male

DRUGS (4)
  1. CYCLOPHOSPHAMIDE. [Suspect]
     Active Substance: CYCLOPHOSPHAMIDE
     Indication: CHRONIC LYMPHOCYTIC LEUKAEMIA
     Dosage: 250 MG/M2, 1/MONTH, LAST DOSE PRIOR TO  SAE ON 26/MAY/2009
     Route: 042
     Dates: start: 20090211
  2. RITUXIMAB [Suspect]
     Active Substance: RITUXIMAB
     Indication: CHRONIC LYMPHOCYTIC LEUKAEMIA
     Dosage: 375 MG/M2, UNK, LAST DOSE PRIOR TO SAE 28/SEP/2010
     Route: 042
     Dates: start: 20090211, end: 20101112
  3. FLUDARABINE [Suspect]
     Active Substance: FLUDARABINE PHOSPHATE
     Indication: CHRONIC LYMPHOCYTIC LEUKAEMIA
     Dosage: 25 MG/M2, 1/MONTH, LAST DOSE PRIOR TO SAE 26/MAY/2009
     Route: 042
     Dates: start: 20090211
  4. ENALAPRIL [Concomitant]
     Active Substance: ENALAPRIL
     Route: 065

REACTIONS (1)
  - Malabsorption [Fatal]

NARRATIVE: CASE EVENT DATE: 20101029
